FAERS Safety Report 13338614 (Version 3)
Quarter: 2017Q2

REPORT INFORMATION
  Report Type: Report from Study
  Country: JP (occurrence: JP)
  Receive Date: 20170315
  Receipt Date: 20170526
  Transmission Date: 20170830
  Serious: Yes (Hospitalization)
  Sender: FDA-Public Use
  Company Number: JP-VIFOR (INTERNATIONAL) INC.-VIT-2017-02314

PATIENT
  Age: 67 Year
  Sex: Male
  Weight: 54.8 kg

DRUGS (16)
  1. REGPARA [Concomitant]
     Active Substance: CINACALCET HYDROCHLORIDE
     Route: 048
     Dates: start: 20161017
  2. BIOFERMIN-R [Concomitant]
     Route: 048
  3. CARDENARIN [Concomitant]
     Route: 048
     Dates: start: 20161010
  4. NESP [Concomitant]
     Active Substance: DARBEPOETIN ALFA
  5. FOSRENOL [Concomitant]
     Active Substance: LANTHANUM CARBONATE
     Route: 048
     Dates: start: 20170119
  6. NEXIUM [Concomitant]
     Active Substance: ESOMEPRAZOLE MAGNESIUM
     Route: 048
  7. URSO [Concomitant]
     Active Substance: URSODIOL
     Route: 048
  8. FEBURIC [Concomitant]
     Active Substance: FEBUXOSTAT
     Route: 048
     Dates: start: 20161114, end: 20170118
  9. L-CARTIN FF [Concomitant]
     Active Substance: LEVOCARNITINE
  10. FOSRENOL [Concomitant]
     Active Substance: LANTHANUM CARBONATE
     Indication: HYPERPHOSPHATAEMIA
     Route: 048
     Dates: end: 20170118
  11. MENESIT [Concomitant]
     Active Substance: CARBIDOPA\LEVODOPA
     Route: 048
  12. VELPHORO [Suspect]
     Active Substance: FERRIC OXYHYDROXIDE
     Indication: HYPERPHOSPHATAEMIA
     Route: 048
     Dates: start: 20161008, end: 20170210
  13. SENNOSIDE [Concomitant]
     Active Substance: SENNOSIDES
     Route: 048
  14. OLMETEC [Concomitant]
     Active Substance: OLMESARTAN MEDOXOMIL
     Route: 048
     Dates: start: 20160912
  15. RIVOTRIL [Concomitant]
     Active Substance: CLONAZEPAM
     Route: 048
  16. OXAROL [Concomitant]
     Active Substance: MAXACALCITOL

REACTIONS (6)
  - Inflammation [Unknown]
  - Enterocolitis viral [Recovering/Resolving]
  - Decreased appetite [Unknown]
  - Enterocolitis [Unknown]
  - Constipation [Recovering/Resolving]
  - Diarrhoea [Unknown]

NARRATIVE: CASE EVENT DATE: 2017
